FAERS Safety Report 8199457-2 (Version None)
Quarter: 2012Q1

REPORT INFORMATION
  Report Type: 
  Country: None (occurrence: None)
  Receive Date: 20120309
  Receipt Date: 20120302
  Transmission Date: 20120608
  Serious: Yes (Other)
  Sender: FDA-Public Use
  Company Number: BR-PFIZER INC-2012057873

PATIENT
  Age: 74 Year
  Sex: Female

DRUGS (4)
  1. GINKO BILOBA [Concomitant]
     Indication: POOR PERIPHERAL CIRCULATION
     Dosage: UNK
     Dates: start: 20090101, end: 20120101
  2. CENTRUM [Concomitant]
     Indication: VITAMIN SUPPLEMENTATION
     Dosage: UNK
     Dates: end: 20120101
  3. XALATAN [Suspect]
     Dosage: ONCE DAILY (LEFT EYE)
     Route: 047
     Dates: start: 20060101, end: 20110901
  4. ATENOLOL [Concomitant]
     Dosage: UNK DAILY
     Dates: start: 20060101, end: 20120101

REACTIONS (2)
  - LABYRINTHITIS [None]
  - CATARACT [None]
